FAERS Safety Report 4501076-3 (Version None)
Quarter: 2004Q4

REPORT INFORMATION
  Report Type: 
  Country: None (occurrence: None)
  Receive Date: 20041110
  Receipt Date: 20041102
  Transmission Date: 20050328
  Serious: Yes (Hospitalization)
  Sender: FDA-Public Use
  Company Number: US-2004-029419

PATIENT
  Age: 36 Year
  Sex: Female
  Weight: 69.8 kg

DRUGS (4)
  1. CLIMARA [Suspect]
     Indication: HORMONE REPLACEMENT THERAPY
     Dosage: 0.05 MG/D, CONT. TRANSDERMAL
     Route: 062
     Dates: start: 20040401
  2. LIPITOR [Suspect]
     Dosage: 40 MG/D, ORAL
     Route: 048
     Dates: start: 19980101, end: 20040801
  3. AMITRIPTYLINE HCL [Concomitant]
  4. NADOLOL [Concomitant]

REACTIONS (2)
  - KIDNEY INFECTION [None]
  - NEPHROLITHIASIS [None]
